FAERS Safety Report 20093678 (Version 2)
Quarter: 2021Q4

REPORT INFORMATION
  Report Type: Spontaneous
  Country: JP (occurrence: JP)
  Receive Date: 20211121
  Receipt Date: 20211214
  Transmission Date: 20220303
  Serious: Yes (Hospitalization, Other)
  Sender: FDA-Public Use
  Company Number: JP-NOVARTISPH-NVSJ2021JP019030

PATIENT
  Sex: Female

DRUGS (1)
  1. RIVASTIGMINE [Suspect]
     Active Substance: RIVASTIGMINE
     Indication: Dementia
     Dosage: UNK
     Route: 062

REACTIONS (7)
  - Cholinergic syndrome [Recovered/Resolved]
  - Vomiting [Recovered/Resolved]
  - Depressed level of consciousness [Recovered/Resolved]
  - Cold sweat [Recovered/Resolved]
  - Asthenia [Recovering/Resolving]
  - Diarrhoea [Recovering/Resolving]
  - Seizure [Recovering/Resolving]

NARRATIVE: CASE EVENT DATE: 20180101
